FAERS Safety Report 5662459-1 (Version None)
Quarter: 2008Q1

REPORT INFORMATION
  Report Type: 
  Country: None (occurrence: None)
  Receive Date: 20080313
  Receipt Date: 20080306
  Transmission Date: 20080703
  Serious: Yes (Other)
  Sender: FDA-Public Use
  Company Number: PHEH2008US01595

PATIENT
  Age: 78 Year
  Sex: Female
  Weight: 120 kg

DRUGS (1)
  1. FEMARA [Suspect]
     Indication: BREAST CANCER
     Dosage: 2.5 MG, QD
     Route: 048
     Dates: start: 20080109, end: 20080206

REACTIONS (16)
  - AGITATION [None]
  - APPETITE DISORDER [None]
  - ARTHRALGIA [None]
  - BONE PAIN [None]
  - BREAST INFECTION [None]
  - CONFUSIONAL STATE [None]
  - DYSARTHRIA [None]
  - HALLUCINATION [None]
  - HEADACHE [None]
  - INSOMNIA [None]
  - JOINT SWELLING [None]
  - MYALGIA [None]
  - NAUSEA [None]
  - OEDEMA PERIPHERAL [None]
  - PARANOIA [None]
  - VISUAL DISTURBANCE [None]
